FAERS Safety Report 8118829-5 (Version None)
Quarter: 2012Q1

REPORT INFORMATION
  Report Type: 
  Country: None (occurrence: None)
  Receive Date: 20120131
  Receipt Date: 20120116
  Transmission Date: 20120608
  Serious: Yes (Death)
  Sender: FDA-Public Use
  Company Number: 2012DZ0015

PATIENT
  Age: 7 Month
  Sex: Female

DRUGS (7)
  1. NITISINONE (NITISINONE) (5 MILLIGRAM) [Suspect]
     Indication: TYROSINAEMIA
     Dosage: 1 CAPS MORNING AND HALF A CAPS, ORAL
     Route: 048
     Dates: start: 20111212, end: 20111219
  2. VITAMIN K (VITAMINE K) [Concomitant]
  3. SOLU-MEDROL [Concomitant]
  4. VITAMINE D (VITAMINE D) IU (INTERNAL UNIT) [Concomitant]
  5. ALBUTEROL SULFATE AUTOHALER [Concomitant]
  6. ALDACTONE [Concomitant]
  7. VITAMINE A (VITAMINE A) [Concomitant]

REACTIONS (1)
  - HAEMORRHAGE [None]
